FAERS Safety Report 10934244 (Version 2)
Quarter: 2015Q3

REPORT INFORMATION
  Report Type: Spontaneous
  Country: US (occurrence: US)
  Receive Date: 20150320
  Receipt Date: 20150918
  Transmission Date: 20151125
  Serious: Yes (Death, Other)
  Sender: FDA-Public Use
  Company Number: US-ASTRAZENECA-2014SE56412

PATIENT
  Age: 27834 Day
  Sex: Male
  Weight: 96.6 kg

DRUGS (39)
  1. GLYBURIDE. [Concomitant]
     Active Substance: GLYBURIDE
     Dates: start: 20080512
  2. XANAX [Concomitant]
     Active Substance: ALPRAZOLAM
  3. GLYBURIDE/METFORMIN [Concomitant]
     Active Substance: GLYBURIDE\METFORMIN
     Dosage: 5/500 MG ONCE DAILY
     Dates: start: 20020509
  4. PRILOSEC [Concomitant]
     Active Substance: OMEPRAZOLE MAGNESIUM
     Route: 048
     Dates: start: 20121017
  5. NIACIN. [Concomitant]
     Active Substance: NIACIN
     Route: 048
     Dates: start: 20120515
  6. AZITHROMYCIN [Concomitant]
     Active Substance: AZITHROMYCIN ANHYDROUS
     Dates: start: 20100413
  7. METFORMIN HCL [Concomitant]
     Active Substance: METFORMIN HYDROCHLORIDE
     Route: 048
     Dates: start: 20080512
  8. HALOPERIDOL. [Concomitant]
     Active Substance: HALOPERIDOL
  9. MULTIVITAMIN [Concomitant]
     Active Substance: VITAMINS
     Dates: start: 20060315
  10. PLAVIX [Concomitant]
     Active Substance: CLOPIDOGREL BISULFATE
     Route: 065
     Dates: start: 20030915
  11. NYSTATIN. [Concomitant]
     Active Substance: NYSTATIN
  12. CEPHALEXIN. [Concomitant]
     Active Substance: CEPHALEXIN
     Dates: start: 20060327
  13. SIMVASTATIN. [Concomitant]
     Active Substance: SIMVASTATIN
     Dates: start: 20101217
  14. ZOFRAN [Concomitant]
     Active Substance: ONDANSETRON HYDROCHLORIDE
     Dates: start: 20121203
  15. FOLIC ACID. [Concomitant]
     Active Substance: FOLIC ACID
     Dates: start: 20060315
  16. BYETTA [Suspect]
     Active Substance: EXENATIDE
     Indication: TYPE 2 DIABETES MELLITUS
     Route: 065
     Dates: start: 20070111
  17. BYETTA [Suspect]
     Active Substance: EXENATIDE
     Indication: TYPE 2 DIABETES MELLITUS
     Dosage: 10 MCG/0.04
     Route: 065
     Dates: start: 20080822
  18. LIPITOR [Concomitant]
     Active Substance: ATORVASTATIN CALCIUM
     Dates: start: 20061213
  19. ZANTAC [Concomitant]
     Active Substance: RANITIDINE HYDROCHLORIDE
     Route: 048
     Dates: start: 20121017
  20. AVANDIA [Concomitant]
     Active Substance: ROSIGLITAZONE MALEATE
     Dates: start: 20020703
  21. BYETTA [Suspect]
     Active Substance: EXENATIDE
     Indication: TYPE 2 DIABETES MELLITUS
     Route: 058
     Dates: start: 20060315
  22. JANUVIA [Suspect]
     Active Substance: SITAGLIPTIN PHOSPHATE
     Indication: TYPE 2 DIABETES MELLITUS
     Route: 065
     Dates: start: 20080822, end: 20111107
  23. JANUVIA [Suspect]
     Active Substance: SITAGLIPTIN PHOSPHATE
     Indication: TYPE 2 DIABETES MELLITUS
     Route: 065
     Dates: start: 20111107
  24. ALTACE [Concomitant]
     Active Substance: RAMIPRIL
     Dates: start: 20071117
  25. AMARYL [Concomitant]
     Active Substance: GLIMEPIRIDE
     Dates: start: 20020509
  26. CHLORPROPAMIDE. [Concomitant]
     Active Substance: CHLORPROPAMIDE
     Dates: start: 20020703
  27. CIALIS [Concomitant]
     Active Substance: TADALAFIL
  28. BYETTA [Suspect]
     Active Substance: EXENATIDE
     Indication: TYPE 2 DIABETES MELLITUS
     Route: 065
     Dates: start: 20070111, end: 20080822
  29. JANUVIA [Suspect]
     Active Substance: SITAGLIPTIN PHOSPHATE
     Indication: TYPE 2 DIABETES MELLITUS
     Route: 065
     Dates: start: 20081118
  30. JANUVIA [Suspect]
     Active Substance: SITAGLIPTIN PHOSPHATE
     Indication: TYPE 2 DIABETES MELLITUS
     Route: 048
     Dates: start: 20090112
  31. LANTUS SOLOSTAR [Concomitant]
     Active Substance: INSULIN GLARGINE
     Dosage: 100/ML(3)
     Dates: start: 20090612
  32. ASPIRIN. [Concomitant]
     Active Substance: ASPIRIN
     Route: 048
     Dates: start: 20061213
  33. CARAFATE [Concomitant]
     Active Substance: SUCRALFATE
     Route: 048
     Dates: start: 20121017
  34. CLINDAMYCIN [Concomitant]
     Active Substance: CLINDAMYCIN\CLINDAMYCIN PHOSPHATE
     Dates: start: 20081014
  35. CINNAMON. [Concomitant]
     Active Substance: CINNAMON
     Dates: start: 20060315
  36. JANUVIA [Suspect]
     Active Substance: SITAGLIPTIN PHOSPHATE
     Indication: TYPE 2 DIABETES MELLITUS
     Route: 065
     Dates: start: 20100411
  37. METOPROLOL SUCCINATE. [Concomitant]
     Active Substance: METOPROLOL SUCCINATE
     Dates: start: 20071226
  38. HUMULIN N [Concomitant]
     Active Substance: INSULIN HUMAN
     Dosage: 50 UNITS
     Dates: start: 20020509
  39. VITAMIN D [Concomitant]
     Active Substance: CHOLECALCIFEROL
     Dates: start: 20060315

REACTIONS (8)
  - Pancreatic carcinoma metastatic [Fatal]
  - Encephalopathy [Fatal]
  - Malignant mesenteric neoplasm [Unknown]
  - Metastases to pelvis [Unknown]
  - Metastases to peritoneum [Unknown]
  - Metastases to abdominal cavity [Unknown]
  - Metastases to liver [Unknown]
  - Metastases to small intestine [Unknown]

NARRATIVE: CASE EVENT DATE: 20121211
